FAERS Safety Report 12408618 (Version 1)
Quarter: 2016Q2

REPORT INFORMATION
  Report Type: Spontaneous
  Country: IT (occurrence: IT)
  Receive Date: 20160526
  Receipt Date: 20160526
  Transmission Date: 20160815
  Serious: Yes (Hospitalization)
  Sender: FDA-Public Use
  Company Number: IT-BAYER-2016-099782

PATIENT
  Age: 80 Year
  Sex: Female

DRUGS (21)
  1. PARACETAMOL [Suspect]
     Active Substance: ACETAMINOPHEN
     Indication: ANALGESIC THERAPY
     Dosage: UNK
     Route: 048
     Dates: start: 20151001, end: 20151103
  2. PANTORC [Concomitant]
     Active Substance: PANTOPRAZOLE SODIUM
     Dosage: DAILY DOSE 40 MG
  3. ENTACT [Concomitant]
     Active Substance: ESCITALOPRAM OXALATE
     Dosage: DAILY DOSE 10 MG
  4. METFORMIN [Concomitant]
     Active Substance: METFORMIN HYDROCHLORIDE
  5. LANTUS [Concomitant]
     Active Substance: INSULIN GLARGINE
     Dosage: DAILY DOSE 26 IU/KG
  6. FERROUS SULFATE. [Concomitant]
     Active Substance: FERROUS SULFATE
  7. URDES [Concomitant]
  8. KANRENOL [Concomitant]
     Active Substance: CANRENOATE POTASSIUM
     Dosage: DAILY DOSE 100 MG
  9. DOBETIN [Concomitant]
     Active Substance: CYANOCOBALAMIN
  10. XANAX [Concomitant]
     Active Substance: ALPRAZOLAM
  11. CYMBALTA [Concomitant]
     Active Substance: DULOXETINE HYDROCHLORIDE
  12. ARCOXIA [Suspect]
     Active Substance: ETORICOXIB
     Indication: ANTIINFLAMMATORY THERAPY
     Dosage: UNK
     Route: 048
     Dates: start: 20151001, end: 20151103
  13. CONGESCOR [Concomitant]
     Active Substance: BISOPROLOL
     Dosage: DAILY DOSE 2.5 MG
  14. NORVASC [Concomitant]
     Active Substance: AMLODIPINE BESYLATE
     Dosage: DAILY DOSE 5 MG
  15. LASIX [Concomitant]
     Active Substance: FUROSEMIDE
     Dosage: DAILY DOSE 25 MG
  16. FOLINA [Concomitant]
     Active Substance: FOLIC ACID
  17. CARDIOASPIRIN [Suspect]
     Active Substance: ASPIRIN
     Indication: THROMBOSIS PROPHYLAXIS
     Dosage: DAILY DOSE 100 MG
     Route: 048
     Dates: start: 20150101, end: 20151110
  18. ROCEFIN [Concomitant]
     Active Substance: CEFTRIAXONE SODIUM
  19. TRIATEC [Concomitant]
     Active Substance: RAMIPRIL
     Dosage: DAILY DOSE 5 MG
  20. LEVOXACIN [Concomitant]
     Active Substance: LEVOFLOXACIN
  21. REPAGLINIDE. [Concomitant]
     Active Substance: REPAGLINIDE

REACTIONS (4)
  - Abdominal pain upper [Unknown]
  - Anaemia [Unknown]
  - Asthenia [Unknown]
  - Gastritis [Unknown]

NARRATIVE: CASE EVENT DATE: 20151010
